FAERS Safety Report 8248024-0 (Version None)
Quarter: 2012Q1

REPORT INFORMATION
  Report Type: 
  Country: None (occurrence: None)
  Receive Date: 20120330
  Receipt Date: 20120316
  Transmission Date: 20120608
  Serious: Yes (Other)
  Sender: FDA-Public Use
  Company Number: US-ROCHE-1024472

PATIENT
  Sex: Male
  Weight: 65.83 kg

DRUGS (2)
  1. ACCUTANE [Suspect]
     Indication: ACNE
     Dates: start: 19970101
  2. ACCUTANE [Suspect]
     Dates: start: 19980101, end: 19990301

REACTIONS (8)
  - BACK PAIN [None]
  - EAR INFECTION [None]
  - COLITIS ULCERATIVE [None]
  - EMOTIONAL DISTRESS [None]
  - INFLAMMATORY BOWEL DISEASE [None]
  - SPINA BIFIDA [None]
  - DEPRESSION [None]
  - SINUSITIS [None]
